FAERS Safety Report 20131821 (Version 2)
Quarter: 2022Q1

REPORT INFORMATION
  Report Type: Spontaneous
  Country: FR (occurrence: FR)
  Receive Date: 20211130
  Receipt Date: 20220125
  Transmission Date: 20220423
  Serious: Yes (Death, Hospitalization)
  Sender: FDA-Public Use
  Company Number: None

PATIENT
  Age: 75 Year
  Sex: Male
  Weight: 56 kg

DRUGS (1)
  1. OXYCODONE HYDROCHLORIDE [Suspect]
     Active Substance: OXYCODONE HYDROCHLORIDE
     Indication: Gait disturbance
     Dosage: 26 MG, TOTAL (ENTRE 3H36 ET 8H EN PLUS DES BOLUS D^AUTO-ADMINISTRATION; STRENGTH 50 MG/ML)
     Route: 041
     Dates: start: 20210710

REACTIONS (4)
  - Coma [Fatal]
  - Overdose [Recovered/Resolved]
  - Device programming error [Recovered/Resolved]
  - Product administration error [Recovered/Resolved]

NARRATIVE: CASE EVENT DATE: 20210710
